FAERS Safety Report 14964533 (Version 1)
Quarter: 2018Q2

REPORT INFORMATION
  Report Type: Spontaneous
  Country: US (occurrence: US)
  Receive Date: 20180601
  Receipt Date: 20180601
  Transmission Date: 20180711
  Serious: Yes (Life-Threatening, Hospitalization, Other)
  Sender: FDA-Public Use
  Company Number: US-JNJFOC-20180542110

PATIENT
  Age: 38 Year
  Sex: Female

DRUGS (2)
  1. LOPERAMIDE HYDROCHLORIDE. [Suspect]
     Active Substance: LOPERAMIDE HYDROCHLORIDE
     Route: 065
  2. LOPERAMIDE HYDROCHLORIDE. [Suspect]
     Active Substance: LOPERAMIDE HYDROCHLORIDE
     Indication: DRUG WITHDRAWAL SYNDROME
     Route: 065

REACTIONS (8)
  - Electrocardiogram QT prolonged [Recovered/Resolved]
  - Torsade de pointes [Unknown]
  - Tachycardia [Unknown]
  - Ventricular tachycardia [Unknown]
  - Drug abuse [Unknown]
  - Sinus bradycardia [Unknown]
  - Ventricular fibrillation [Unknown]
  - Overdose [Unknown]
